FAERS Safety Report 26171497 (Version 1)
Quarter: 2025Q4

REPORT INFORMATION
  Report Type: Report from Study
  Country: CA (occurrence: CA)
  Receive Date: 20251217
  Receipt Date: 20251217
  Transmission Date: 20260118
  Serious: Yes (Hospitalization, Disabling, Other)
  Sender: GILEAD
  Company Number: CA-GILEAD-2025-0740970

PATIENT
  Sex: Female

DRUGS (16)
  1. BICTEGRAVIR\EMTRICITABINE\TENOFOVIR ALAFENAMIDE [Suspect]
     Active Substance: BICTEGRAVIR\EMTRICITABINE\TENOFOVIR ALAFENAMIDE
     Indication: HIV infection
     Dosage: UNK
     Route: 065
  2. FLUCONAZOLE [Concomitant]
     Active Substance: FLUCONAZOLE
     Indication: Prophylaxis
     Dosage: 400 MG, QD
     Dates: start: 20251205
  3. POLYETHYLENE GLYCOL 3350 [Concomitant]
     Active Substance: POLYETHYLENE GLYCOL 3350
     Indication: Constipation
     Dosage: 17 G, QD
     Dates: start: 20251209
  4. PHOSPHATE [POTASSIUM BICARBONATE;SODIUM PHOSPHATE MONOBASIC] [Concomitant]
     Indication: Blood phosphorus decreased
     Dosage: 500 MG, BID
     Dates: start: 20251209
  5. ATROVENT [Concomitant]
     Active Substance: IPRATROPIUM BROMIDE
     Indication: Cough
     Dosage: 250 UG, Q6H
     Route: 055
     Dates: start: 20251210
  6. POTASSIUM CITRATE [Concomitant]
     Active Substance: POTASSIUM CITRATE
     Indication: Blood potassium decreased
     Dosage: 25 MG, QD
     Dates: start: 20251211
  7. METHYLPREDNISOLONE [Concomitant]
     Active Substance: METHYLPREDNISOLONE
     Dosage: 50 MG, QD
     Route: 042
     Dates: start: 20251212
  8. ONDANSETRON [Concomitant]
     Active Substance: ONDANSETRON
     Indication: Nausea
     Dosage: 4 MG (EVERY 6 HOURS AS NEEDED)
     Dates: start: 20251204
  9. GRAVOL [Concomitant]
     Active Substance: DIMENHYDRINATE
     Indication: Nausea
     Dosage: 25 TO 50 MG - EVERY 4 HOURS AS NEEDED
     Dates: start: 20251204
  10. NICORETTE [Concomitant]
     Active Substance: NICOTINE
     Indication: Ex-tobacco user
     Dosage: 2 MG (EVERY HOURS AS NEEDED)
     Dates: start: 20251204
  11. ACETAMINOPHEN [Concomitant]
     Active Substance: ACETAMINOPHEN
     Indication: Pain
     Dosage: 325 MG (EVERY 4 HOURS AS NEEDED)
     Dates: start: 20251204
  12. HYDROMORPHONE [Concomitant]
     Active Substance: HYDROMORPHONE
     Indication: Pain
     Dosage: 0.25 TO 1 MG - EVERY 4 HOURS
     Dates: start: 20251208
  13. SENOKOT [Concomitant]
     Active Substance: SENNOSIDES
     Indication: Constipation
     Dosage: 17.2 MG, QD
     Dates: start: 20251208
  14. GLYCERIN [Concomitant]
     Active Substance: GLYCERIN
     Indication: Constipation
     Dosage: 1 SUPP RECTALLY AS NEEDED
     Dates: start: 20251208
  15. SODIUM PHOSPHATE [Concomitant]
     Active Substance: SODIUM PHOSPHATE
     Indication: Constipation
     Dosage: N/A
     Dates: start: 20251208
  16. ALBUTEROL [Concomitant]
     Active Substance: ALBUTEROL
     Indication: Cough
     Dosage: 2.5 MG (INHALED EVERY 2 HOURS AS NEEDED)
     Route: 055
     Dates: start: 20251210

REACTIONS (3)
  - Gastrointestinal haemorrhage [Not Recovered/Not Resolved]
  - Pneumonia [Not Recovered/Not Resolved]
  - Infection [Not Recovered/Not Resolved]
